FAERS Safety Report 26002515 (Version 2)
Quarter: 2025Q4

REPORT INFORMATION
  Report Type: Spontaneous
  Country: US (occurrence: US)
  Receive Date: 20251105
  Receipt Date: 20251105
  Transmission Date: 20260118
  Serious: Yes (Other)
  Sender: GLAXOSMITHKLINE
  Company Number: US-GSK-US2025140306

PATIENT
  Sex: Female

DRUGS (3)
  1. ARNUITY ELLIPTA [Suspect]
     Active Substance: FLUTICASONE FUROATE
     Indication: Asthma
     Dosage: 1 PUFF(S), QD 50 UG, QD, 1 PUFF
  2. VENTOLIN [Suspect]
     Active Substance: ALBUTEROL SULFATE
     Indication: Asthma
     Dosage: AS NEEDED
  3. VENTOLIN [Concomitant]
     Active Substance: ALBUTEROL SULFATE
     Indication: Product used for unknown indication
     Dosage: AS NEEDED

REACTIONS (7)
  - Pneumonia [Unknown]
  - Infection [Unknown]
  - Skin abrasion [Unknown]
  - Illness [Unknown]
  - Underdose [Unknown]
  - Product dose omission issue [Unknown]
  - Product administered to patient of inappropriate age [Unknown]
